FAERS Safety Report 5442601-8 (Version None)
Quarter: 2007Q3

REPORT INFORMATION
  Report Type: 
  Country: None (occurrence: None)
  Receive Date: 20070830
  Receipt Date: 20070821
  Transmission Date: 20080115
  Serious: Yes (Other)
  Sender: FDA-Public Use
  Company Number: 2000-07-0571

PATIENT
  Sex: Female

DRUGS (2)
  1. REBETOL [Suspect]
     Indication: HEPATITIS C
     Dosage: PO
     Route: 048
  2. INTRON A [Suspect]
     Indication: DRUG USE FOR UNKNOWN INDICATION
     Dosage: QD; SC; TIW; SC
     Route: 058

REACTIONS (6)
  - ALOPECIA [None]
  - ASTHENIA [None]
  - MALAISE [None]
  - PNEUMONIA [None]
  - PULMONARY SARCOIDOSIS [None]
  - WEIGHT DECREASED [None]
